FAERS Safety Report 14536008 (Version 1)
Quarter: 2018Q1

REPORT INFORMATION
  Report Type: Spontaneous
  Country: DE (occurrence: DE)
  Receive Date: 20180215
  Receipt Date: 20180215
  Transmission Date: 20180509
  Serious: Yes (Other)
  Sender: FDA-Public Use
  Company Number: DE-AUROBINDO-AUR-APL-2018-002544

PATIENT
  Age: 37 Year
  Sex: Female
  Weight: 68 kg

DRUGS (12)
  1. INTERFERON ALFA-2A [Suspect]
     Active Substance: INTERFERON ALFA-2A
     Dosage: 3 X 9 MILLION IU (1)
     Route: 058
  2. CITALOPRAM [Suspect]
     Active Substance: CITALOPRAM HYDROBROMIDE
     Dosage: ()
     Route: 048
  3. INTERFERON ALFA-2A [Suspect]
     Active Substance: INTERFERON ALFA-2A
     Dosage: 1.5 X 9 MILLION IU ()
  4. INTERFERON ALFA-2A [Suspect]
     Active Substance: INTERFERON ALFA-2A
     Indication: BEHCET^S SYNDROME
     Dosage: 1.5 X 9 MILLION IU (1)
     Route: 058
  5. PROMETHAZINE [Suspect]
     Active Substance: PROMETHAZINE\PROMETHAZINE HYDROCHLORIDE
     Indication: DEPRESSION
     Dosage: UNK
     Route: 048
  6. CITALOPRAM [Suspect]
     Active Substance: CITALOPRAM HYDROBROMIDE
     Indication: DEPRESSION
     Dosage: UNK
     Route: 048
  7. DOXEPIN [Suspect]
     Active Substance: DOXEPIN
     Indication: DEPRESSION
     Dosage: UNK
     Route: 065
  8. LORAZEPAM. [Suspect]
     Active Substance: LORAZEPAM
  9. INTERFERON ALFA-2A [Suspect]
     Active Substance: INTERFERON ALFA-2A
     Dosage: 3 X 6 MILLION IU/ (1)
     Route: 058
  10. INTERFERON ALFA-2A [Suspect]
     Active Substance: INTERFERON ALFA-2A
     Dosage: 3 X 9 MILLION IU ()
  11. INTERFERON ALFA-2A [Suspect]
     Active Substance: INTERFERON ALFA-2A
     Dosage: 3 X 6 MILLION IU/ ()
     Route: 058
  12. LORAZEPAM. [Suspect]
     Active Substance: LORAZEPAM
     Indication: DEPRESSION
     Dosage: 0.5 MG, DAILY
     Route: 048

REACTIONS (11)
  - Anxiety [Unknown]
  - Hyperprolactinaemia [Unknown]
  - Breast pain [Unknown]
  - Maternal exposure before pregnancy [Unknown]
  - Exposure during pregnancy [Unknown]
  - Alopecia [Unknown]
  - Fatigue [Unknown]
  - Hypertrichosis [Unknown]
  - Depression [Unknown]
  - Mood swings [Unknown]
  - Panic attack [Unknown]
